FAERS Safety Report 8924273 (Version 1)
Quarter: 2012Q4

REPORT INFORMATION
  Report Type: 
  Country: JP (occurrence: JP)
  Receive Date: 20121126
  Receipt Date: 20121126
  Transmission Date: 20130627
  Serious: Yes (Death)
  Sender: FDA-Public Use
  Company Number: JP-BAXTER-2012BAX024351

PATIENT
  Sex: Male
  Weight: 55 kg

DRUGS (2)
  1. DIANEAL PD4 WITH 1.5% DEXTROSE [Suspect]
     Indication: RENAL FAILURE CHRONIC
     Route: 033
  2. DIANEAL PD4 WITH 1.5% DEXTROSE [Suspect]
     Indication: PERITONEAL LAVAGE
     Route: 033
     Dates: start: 20121101, end: 20121116

REACTIONS (2)
  - Cardiac failure [Fatal]
  - Inadequate aseptic technique in use of product [None]
